FAERS Safety Report 11552203 (Version 1)
Quarter: 2015Q3

REPORT INFORMATION
  Report Type: Spontaneous
  Country: None (occurrence: None)
  Receive Date: 20150924
  Receipt Date: 20150924
  Transmission Date: 20151125
  Serious: Yes (Life-Threatening)
  Sender: FDA-Public Use
  Company Number: None

PATIENT
  Age: 64 Year
  Sex: Female

DRUGS (9)
  1. LISINOPRIL. [Concomitant]
     Active Substance: LISINOPRIL
  2. LANTUS SOLOSTAR [Concomitant]
     Active Substance: INSULIN GLARGINE
  3. METOPROLOL TARTRATE. [Concomitant]
     Active Substance: METOPROLOL TARTRATE
  4. ASA [Concomitant]
     Active Substance: ASPIRIN
  5. MVI [Concomitant]
     Active Substance: VITAMINS
  6. TOUJEO [Suspect]
     Active Substance: INSULIN GLARGINE
     Indication: TYPE 2 DIABETES MELLITUS
     Dosage: 18 UNITS, GIVEN INTO/UNDER THE SKIN
     Route: 058
     Dates: start: 20150831, end: 20150920
  7. ATORVASTATIN [Concomitant]
     Active Substance: ATORVASTATIN
  8. CALCIUM/VIT D [Concomitant]
  9. CLOPIDOGREL [Concomitant]
     Active Substance: CLOPIDOGREL BISULFATE

REACTIONS (8)
  - Injection site swelling [None]
  - Vision blurred [None]
  - Peripheral swelling [None]
  - Joint swelling [None]
  - Dizziness [None]
  - Confusional state [None]
  - Blood glucose decreased [None]
  - Injection site pain [None]

NARRATIVE: CASE EVENT DATE: 20150920
